FAERS Safety Report 7685105-4 (Version None)
Quarter: 2011Q3

REPORT INFORMATION
  Report Type: 
  Country: None (occurrence: None)
  Receive Date: 20110811
  Receipt Date: 20110727
  Transmission Date: 20111222
  Serious: Yes (Hospitalization)
  Sender: FDA-Public Use
  Company Number: TCI2011A03972

PATIENT
  Age: 77 Year
  Sex: Female

DRUGS (10)
  1. RIFADIN [Concomitant]
  2. CLARITHROMYCIN [Concomitant]
  3. LEVOFLOXACIN [Concomitant]
  4. AMARYL [Concomitant]
  5. PIOGLITAZONE HYDROCHLORIDE AND METFORMIN HYDROCHLORIDE [Suspect]
     Indication: TYPE 2 DIABETES MELLITUS
     Dosage: 1 TAB.1 TAB., 1 IN 1 D) PER ORAL
     Route: 048
     Dates: start: 20110121, end: 20110304
  6. VICTOZA [Suspect]
     Indication: TYPE 2 DIABETES MELLITUS
     Dosage: 0.9 MG (0.9 MG, 1 IN 1D) SUBCUTANEOUS, } = 3 M BEFORE METACT START - LATE  01/2011
     Route: 058
     Dates: start: 20110101
  7. METFORMIN HYDROCHLORIDE [Concomitant]
  8. ACTOS [Suspect]
     Indication: TYPE 2 DIABETES MELLITUS
     Dosage: 15 MG (15 MG, 1 D) PER ORAL, 30 MG (30 MG, 1 D) PER ORAL
     Route: 048
     Dates: start: 20110121, end: 20110304
  9. ACTOS [Suspect]
     Indication: TYPE 2 DIABETES MELLITUS
     Dosage: 15 MG (15 MG, 1 D) PER ORAL, 30 MG (30 MG, 1 D) PER ORAL
     Route: 048
     Dates: start: 20101129, end: 20101216
  10. ACTOS [Suspect]
     Indication: TYPE 2 DIABETES MELLITUS
     Dosage: 15 MG (15 MG, 1 D) PER ORAL, 30 MG (30 MG, 1 D) PER ORAL
     Route: 048
     Dates: start: 20101217, end: 20110120

REACTIONS (9)
  - VOMITING [None]
  - HYPOGLYCAEMIA [None]
  - NAUSEA [None]
  - DEHYDRATION [None]
  - HEART RATE INCREASED [None]
  - HYPOPHAGIA [None]
  - OEDEMA PERIPHERAL [None]
  - PLEURAL EFFUSION [None]
  - DECREASED APPETITE [None]
